FAERS Safety Report 14137485 (Version 4)
Quarter: 2018Q2

REPORT INFORMATION
  Report Type: Spontaneous
  Country: IT (occurrence: IT)
  Receive Date: 20171027
  Receipt Date: 20180625
  Transmission Date: 20180711
  Serious: Yes (Hospitalization, Other)
  Sender: FDA-Public Use
  Company Number: IT-PFIZER INC-2017462263

PATIENT
  Age: 58 Year
  Sex: Male

DRUGS (18)
  1. MEROPENEM. [Suspect]
     Active Substance: MEROPENEM
     Indication: INFECTION
     Dosage: 500 MG, SINGLE (TOTAL)
     Dates: start: 20170701
  2. FOSTER /00500401/ [Concomitant]
     Active Substance: PIROXICAM
     Dosage: UNK
  3. ACICLOVIR [Concomitant]
     Active Substance: ACYCLOVIR
     Dosage: UNK
  4. CLONIDINE HCL [Concomitant]
     Active Substance: CLONIDINE HYDROCHLORIDE
     Dosage: UNK
  5. OMEPRAZOLE. [Concomitant]
     Active Substance: OMEPRAZOLE
     Dosage: UNK
  6. FERRO-GRAD [Concomitant]
     Active Substance: FERROUS SULFATE
     Dosage: UNK
  7. CARDURA [Concomitant]
     Active Substance: DOXAZOSIN MESYLATE
     Dosage: 4 MG, UNK
  8. LINEZOLID. [Suspect]
     Active Substance: LINEZOLID
     Indication: INFECTION
     Dosage: UNK
     Dates: start: 20170701
  9. LEVOFLOXACIN. [Suspect]
     Active Substance: LEVOFLOXACIN
     Indication: INFECTION
     Dosage: 500 MG, SINGLE (TOTAL)
     Route: 042
     Dates: start: 20170701, end: 20170701
  10. FUROSEMIDE. [Concomitant]
     Active Substance: FUROSEMIDE
     Dosage: UNK
  11. TAPENTADOL [Concomitant]
     Active Substance: TAPENTADOL
     Dosage: UNK
  12. LEDERFOLIN [Concomitant]
     Active Substance: LEUCOVORIN CALCIUM
     Dosage: UNK
  13. PARACETAMOL [Concomitant]
     Active Substance: ACETAMINOPHEN
     Dosage: UNK
  14. ATORVASTATIN [Concomitant]
     Active Substance: ATORVASTATIN
     Dosage: UNK
  15. EPREX [Concomitant]
     Active Substance: ERYTHROPOIETIN
     Dosage: 1 DF, UNK
  16. ADENURIC [Concomitant]
     Active Substance: FEBUXOSTAT
     Dosage: UNK
  17. KAYEXALATE [Concomitant]
     Active Substance: SODIUM POLYSTYRENE SULFONATE
     Dosage: UNK
  18. BICARBONATE SODIUM [Concomitant]
     Active Substance: SODIUM BICARBONATE
     Dosage: UNK

REACTIONS (5)
  - Renal failure [Recovering/Resolving]
  - Hypersensitivity [Recovering/Resolving]
  - Amyloidosis [Recovering/Resolving]
  - Pain in extremity [Recovering/Resolving]
  - Peripheral swelling [Recovering/Resolving]

NARRATIVE: CASE EVENT DATE: 20170701
